FAERS Safety Report 13248909 (Version 1)
Quarter: 2017Q1

REPORT INFORMATION
  Report Type: Spontaneous
  Country: US (occurrence: US)
  Receive Date: 20170218
  Receipt Date: 20170218
  Transmission Date: 20170428
  Serious: No
  Sender: FDA-Public Use
  Company Number: US-ALLERGAN-1637449US

PATIENT
  Age: 39 Year
  Sex: Female
  Weight: 68.27 kg

DRUGS (2)
  1. ALLEGRA [Concomitant]
     Active Substance: FEXOFENADINE HYDROCHLORIDE
  2. RESTASIS [Suspect]
     Active Substance: CYCLOSPORINE
     Indication: DRY EYE
     Dosage: 2 GTT, BID
     Route: 047
     Dates: start: 201512, end: 201602

REACTIONS (3)
  - Acne [Not Recovered/Not Resolved]
  - Facial pain [Not Recovered/Not Resolved]
  - Dry skin [Not Recovered/Not Resolved]
